FAERS Safety Report 6057826-0 (Version None)
Quarter: 2009Q1

REPORT INFORMATION
  Report Type: 
  Country: None (occurrence: None)
  Receive Date: 20090129
  Receipt Date: 20090127
  Transmission Date: 20090719
  Serious: Yes (Hospitalization)
  Sender: FDA-Public Use
  Company Number: CA-WYE-G02307608

PATIENT
  Sex: Male
  Weight: 79 kg

DRUGS (15)
  1. TACROLIMUS [Suspect]
     Indication: PROPHYLAXIS AGAINST TRANSPLANT REJECTION
     Route: 048
     Dates: start: 20080707
  2. PREDNISONE [Concomitant]
     Route: 048
     Dates: end: 20081001
  3. PREDNISONE [Concomitant]
     Route: 048
     Dates: start: 20081001
  4. SEPTRA [Concomitant]
     Route: 048
  5. PREVACID [Concomitant]
     Route: 048
  6. ATACAND [Concomitant]
     Route: 048
  7. AMLODIPINE [Concomitant]
     Route: 048
  8. DIAMICRON [Concomitant]
     Route: 048
  9. METFORMIN HCL [Concomitant]
     Route: 048
  10. BISOPROLOL [Concomitant]
     Route: 048
  11. MYCOPHENOLATE MOFETIL [Concomitant]
     Route: 048
     Dates: start: 20081001, end: 20081001
  12. MYCOPHENOLATE MOFETIL [Concomitant]
     Route: 048
     Dates: start: 20081001, end: 20081006
  13. MYCOPHENOLATE MOFETIL [Concomitant]
     Route: 048
     Dates: end: 20080101
  14. MYCOPHENOLATE MOFETIL [Concomitant]
     Route: 048
     Dates: start: 20081007
  15. IRON [Concomitant]
     Route: 048

REACTIONS (5)
  - ANURIA [None]
  - BLOOD CREATININE INCREASED [None]
  - PYREXIA [None]
  - SEPTIC SHOCK [None]
  - URINARY TRACT INFECTION ENTEROCOCCAL [None]
